FAERS Safety Report 11281859 (Version 1)
Quarter: 2015Q3

REPORT INFORMATION
  Report Type: Spontaneous
  Country: JP (occurrence: JP)
  Receive Date: 20150717
  Receipt Date: 20150717
  Transmission Date: 20151125
  Serious: Yes (Life-Threatening)
  Sender: FDA-Public Use
  Company Number: JP-ASTRAZENECA-2015SE69462

PATIENT
  Age: 72 Year
  Sex: Male

DRUGS (4)
  1. MEROPENEM. [Suspect]
     Active Substance: MEROPENEM
     Indication: PYREXIA
     Route: 041
  2. OMEPRAZOLE. [Suspect]
     Active Substance: OMEPRAZOLE
     Route: 048
  3. INDACIN [Concomitant]
     Active Substance: INDOMETHACIN
  4. METHOTREXATE [Concomitant]
     Active Substance: METHOTREXATE

REACTIONS (2)
  - Pancytopenia [Unknown]
  - Disseminated intravascular coagulation [Unknown]

NARRATIVE: CASE EVENT DATE: 20150706
